FAERS Safety Report 9060710 (Version 1)
Quarter: 2013Q1

REPORT INFORMATION
  Report Type: Spontaneous
  Country: IT (occurrence: IT)
  Receive Date: 20130204
  Receipt Date: 20130204
  Transmission Date: 20140127
  Serious: Yes (Death, Other)
  Sender: FDA-Public Use
  Company Number: IT-TEVA-382939ISR

PATIENT
  Age: 81 None
  Sex: Male

DRUGS (2)
  1. TICLOPIDINA [Suspect]
     Indication: CEREBRAL INFARCTION
     Dosage: 250 MILLIGRAM DAILY;
     Route: 048
     Dates: start: 20110101, end: 20121227
  2. COUMADIN [Suspect]
     Indication: CEREBRAL INFARCTION
     Dosage: 1 DOSAGE FORMS DAILY;
     Route: 048
     Dates: start: 20110101, end: 20121227

REACTIONS (3)
  - Depressed level of consciousness [Fatal]
  - Aphasia [Fatal]
  - Anaemia [Unknown]
